FAERS Safety Report 25126672 (Version 5)
Quarter: 2025Q3

REPORT INFORMATION
  Report Type: Spontaneous
  Country: EU (occurrence: EU)
  Receive Date: 20250327
  Receipt Date: 20250929
  Transmission Date: 20251021
  Serious: Yes (Hospitalization, Other)
  Sender: AUROBINDO
  Company Number: EU-AUROBINDO-AUR-APL-2025-013026

PATIENT
  Age: 33 Year
  Sex: Male

DRUGS (5)
  1. PREGABALIN [Suspect]
     Active Substance: PREGABALIN
     Indication: Pain
     Route: 065
  2. PREGABALIN [Suspect]
     Active Substance: PREGABALIN
     Dosage: 8400 MILLIGRAM, ONCE A DAY
     Route: 065
  3. GABAPENTIN [Suspect]
     Active Substance: GABAPENTIN
     Indication: Drug detoxification
     Dosage: 3600 MILLIGRAM, ONCE A DAY
     Route: 065
  4. GABAPENTIN [Suspect]
     Active Substance: GABAPENTIN
     Indication: Drug use disorder
  5. GABAPENTIN [Suspect]
     Active Substance: GABAPENTIN
     Indication: Off label use

REACTIONS (7)
  - Drug use disorder [Unknown]
  - Drug dependence [Unknown]
  - Anxiety [Unknown]
  - Withdrawal syndrome [Unknown]
  - Intentional product use issue [Unknown]
  - Intentional overdose [Unknown]
  - Off label use [Unknown]
